FAERS Safety Report 4551175-5 (Version None)
Quarter: 2005Q1

REPORT INFORMATION
  Report Type: 
  Country: None (occurrence: None)
  Receive Date: 20050113
  Receipt Date: 20050104
  Transmission Date: 20050727
  Serious: Yes (Hospitalization)
  Sender: FDA-Public Use
  Company Number: FR-BRISTOL-MYERS SQUIBB COMPANY-12815254

PATIENT
  Age: 64 Year
  Sex: Female
  Weight: 69 kg

DRUGS (3)
  1. AMIKLIN POWDER [Suspect]
     Indication: INFECTION
     Dosage: THERAPY WAS INTERRUPTED ON 07-NOV-2004 AND REINTRODUCED ON 09-NOV-2004
     Route: 042
     Dates: start: 20041103, end: 20041110
  2. TARGOCID [Suspect]
     Indication: INFECTION
     Route: 042
     Dates: start: 20041103, end: 20041107
  3. TAZOCILLINE [Suspect]
     Indication: INFECTION
     Route: 042
     Dates: start: 20041103, end: 20041107

REACTIONS (1)
  - PURPURA [None]
